FAERS Safety Report 25796051 (Version 1)
Quarter: 2025Q3

REPORT INFORMATION
  Report Type: Spontaneous
  Country: US (occurrence: None)
  Receive Date: 20250911
  Receipt Date: 20250911
  Transmission Date: 20251021
  Serious: No
  Sender: FDA-CTU
  Company Number: None

PATIENT
  Age: 51 Year
  Sex: Female

DRUGS (1)
  1. PHENAZOPYRIDINE [Suspect]
     Active Substance: PHENAZOPYRIDINE
     Dosage: FREQUENCY : 3 TIMES A DAY;?
     Route: 048

REACTIONS (1)
  - Headache [None]

NARRATIVE: CASE EVENT DATE: 20250911
